FAERS Safety Report 16465965 (Version 2)
Quarter: 2021Q2

REPORT INFORMATION
  Report Type: Spontaneous
  Country: DZ (occurrence: DZ)
  Receive Date: 20190621
  Receipt Date: 20210511
  Transmission Date: 20210716
  Serious: Yes (Hospitalization, Other)
  Sender: FDA-Public Use
  Company Number: PHHY2019DZ120115

PATIENT
  Age: 69 Year
  Sex: Male

DRUGS (2)
  1. TASIGNA [Suspect]
     Active Substance: NILOTINIB
     Indication: DRUG INTOLERANCE
     Dosage: 200 MG, BID
     Route: 048
     Dates: start: 20190416, end: 20190519
  2. TASIGNA [Suspect]
     Active Substance: NILOTINIB
     Indication: PULMONARY ARTERIAL HYPERTENSION

REACTIONS (4)
  - Hiatus hernia [Unknown]
  - Abdominal pain upper [Recovered/Resolved]
  - Product use in unapproved indication [Unknown]
  - Gastric ulcer [Unknown]

NARRATIVE: CASE EVENT DATE: 20190416
